FAERS Safety Report 9866030 (Version 2)
Quarter: 2014Q1

REPORT INFORMATION
  Report Type: Spontaneous
  Country: US (occurrence: US)
  Receive Date: 20140203
  Receipt Date: 20140203
  Transmission Date: 20141002
  Serious: No
  Sender: FDA-Public Use
  Company Number: US-ALLERGAN-1314295US

PATIENT
  Age: 72 Year
  Sex: Male

DRUGS (2)
  1. RESTASIS [Suspect]
     Indication: DRY EYE
     Dosage: 2 GTT, BID
     Route: 047
  2. REFRESH [Concomitant]
     Indication: PRODUCT USED FOR UNKNOWN INDICATION
     Dosage: UNK, PRN

REACTIONS (7)
  - Visual impairment [Recovering/Resolving]
  - Eyelid irritation [Recovering/Resolving]
  - Eye discharge [Recovering/Resolving]
  - Eye discharge [Recovering/Resolving]
  - Eyelid margin crusting [Recovering/Resolving]
  - Superficial injury of eye [Unknown]
  - Drug ineffective [Unknown]
